FAERS Safety Report 14733905 (Version 3)
Quarter: 2018Q2

REPORT INFORMATION
  Report Type: Spontaneous
  Country: US (occurrence: US)
  Receive Date: 20180409
  Receipt Date: 20180628
  Transmission Date: 20180711
  Serious: Yes (Hospitalization, Other)
  Sender: FDA-Public Use
  Company Number: US-GLAXOSMITHKLINE-US2018GSK059232

PATIENT
  Sex: Male
  Weight: 97.52 kg

DRUGS (9)
  1. SIMVASTATIN. [Concomitant]
     Active Substance: SIMVASTATIN
  2. ASPIRIN. [Concomitant]
     Active Substance: ASPIRIN
  3. GABAPENTIN. [Concomitant]
     Active Substance: GABAPENTIN
  4. COREG [Suspect]
     Active Substance: CARVEDILOL
  5. METFORMIN [Concomitant]
     Active Substance: METFORMIN HYDROCHLORIDE
  6. PLAVIX [Concomitant]
     Active Substance: CLOPIDOGREL BISULFATE
  7. ANORO ELLIPTA [Suspect]
     Active Substance: UMECLIDINIUM BROMIDE\VILANTEROL TRIFENATATE
     Indication: CHRONIC OBSTRUCTIVE PULMONARY DISEASE
     Dosage: 1 PUFF(S), QD
     Route: 055
     Dates: start: 20170801, end: 201804
  8. LISINOPRIL. [Concomitant]
     Active Substance: LISINOPRIL
  9. GLIPIZIDE. [Concomitant]
     Active Substance: GLIPIZIDE

REACTIONS (7)
  - Drug interaction [Recovered/Resolved]
  - Hypertension [Not Recovered/Not Resolved]
  - Atypical pneumonia [Unknown]
  - Cardiac dysfunction [Unknown]
  - Cerebrovascular accident [Unknown]
  - Atrioventricular block [Unknown]
  - Myocardial infarction [Unknown]
